FAERS Safety Report 17018014 (Version 1)
Quarter: 2019Q4

REPORT INFORMATION
  Report Type: Spontaneous
  Country: FR (occurrence: FR)
  Receive Date: 20191111
  Receipt Date: 20191111
  Transmission Date: 20200122
  Serious: Yes (Hospitalization)
  Sender: FDA-Public Use
  Company Number: FR-ELI_LILLY_AND_COMPANY-FR201910016007

PATIENT
  Age: 67 Year
  Sex: Male

DRUGS (6)
  1. BROMAZEPAM [Suspect]
     Active Substance: BROMAZEPAM
     Indication: PRODUCT USED FOR UNKNOWN INDICATION
     Dosage: 168 MG, SINGLE (TOTAL)
     Route: 048
     Dates: start: 20191014, end: 20191014
  2. INSPRA [Suspect]
     Active Substance: EPLERENONE
     Indication: PRODUCT USED FOR UNKNOWN INDICATION
     Dosage: 700 MG, SINGLE (TOTAL)
     Route: 048
     Dates: start: 20191014, end: 20191014
  3. LAMALINE [ATROPA BELLADONNA EXTRACT;CAFFEINE; [Suspect]
     Active Substance: ACETAMINOPHEN\BELLADONNA LEAF\CAFFEINE\OPIUM
     Indication: PRODUCT USED FOR UNKNOWN INDICATION
     Dosage: 16 DOSAGE FORM, SINGLE (TOTAL)
     Route: 048
     Dates: start: 20191014, end: 20191014
  4. BISOCE [Suspect]
     Active Substance: BISOPROLOL
     Indication: PRODUCT USED FOR UNKNOWN INDICATION
     Dosage: 105 MG, SINGLE (TOTAL)
     Route: 048
     Dates: start: 20191014, end: 20191014
  5. FLUOXETINE [Suspect]
     Active Substance: FLUOXETINE HYDROCHLORIDE
     Indication: PRODUCT USED FOR UNKNOWN INDICATION
     Dosage: 560 MG, SINGLE (TOTAL)
     Route: 048
     Dates: start: 20191014, end: 20191014
  6. PERINDOPRIL [Suspect]
     Active Substance: PERINDOPRIL
     Indication: PRODUCT USED FOR UNKNOWN INDICATION
     Dosage: 70 MG, SINGLE (TOTAL)
     Route: 048
     Dates: start: 20191014, end: 20191014

REACTIONS (6)
  - Poisoning deliberate [Recovered/Resolved]
  - Bradycardia [Recovered/Resolved]
  - Intentional overdose [Unknown]
  - Pneumonia aspiration [Recovering/Resolving]
  - Urinary retention [Recovered/Resolved]
  - Miosis [Recovered/Resolved]

NARRATIVE: CASE EVENT DATE: 20191014
